FAERS Safety Report 12832427 (Version 2)
Quarter: 2017Q4

REPORT INFORMATION
  Report Type: Spontaneous
  Country: US (occurrence: US)
  Receive Date: 20161010
  Receipt Date: 20171205
  Transmission Date: 20180320
  Serious: No
  Sender: FDA-Public Use
  Company Number: US-JAZZ-2016-US-013156

PATIENT
  Age: 28 Year
  Sex: Female

DRUGS (38)
  1. TORADOL [Concomitant]
     Active Substance: KETOROLAC TROMETHAMINE
  2. EFFEXOR XR [Concomitant]
     Active Substance: VENLAFAXINE HYDROCHLORIDE
  3. SINGULAIR [Concomitant]
     Active Substance: MONTELUKAST SODIUM
  4. XYREM [Suspect]
     Active Substance: SODIUM OXYBATE
     Indication: NARCOLEPSY
     Dosage: 2.5 G, BID
     Route: 048
     Dates: start: 201211, end: 2015
  5. EXCEDRIN MIGRAINE [Concomitant]
     Active Substance: ACETAMINOPHEN\ASPIRIN\CAFFEINE
  6. ADDERALL [Concomitant]
     Active Substance: AMPHETAMINE ASPARTATE\AMPHETAMINE SULFATE\DEXTROAMPHETAMINE SACCHARATE\DEXTROAMPHETAMINE SULFATE
  7. VALTREX [Concomitant]
     Active Substance: VALACYCLOVIR HYDROCHLORIDE
  8. ONE DAILY COMPLETE [Concomitant]
  9. BUSPIRONE HCL [Concomitant]
     Active Substance: BUSPIRONE HYDROCHLORIDE
  10. SEROQUEL [Suspect]
     Active Substance: QUETIAPINE FUMARATE
     Indication: PRODUCT USED FOR UNKNOWN INDICATION
     Dosage: UNK
     Dates: start: 20160704
  11. ALEVE [Concomitant]
     Active Substance: NAPROXEN SODIUM
  12. ROBITUSSIN (GUAIFENESIN) [Concomitant]
     Active Substance: GUAIFENESIN
  13. PULMICORT TURBUHALER [Concomitant]
     Active Substance: BUDESONIDE
  14. PROCHLORPERAZINE. [Concomitant]
     Active Substance: PROCHLORPERAZINE
  15. TUMS EX [Concomitant]
     Active Substance: CALCIUM CARBONATE
  16. IBUPROFEN. [Concomitant]
     Active Substance: IBUPROFEN
  17. PRENATAL DHA [Concomitant]
     Active Substance: DOCONEXENT\MINERALS\VITAMINS
  18. HYDROCODONE BITARTRATE. [Concomitant]
     Active Substance: HYDROCODONE BITARTRATE
  19. XANAX [Concomitant]
     Active Substance: ALPRAZOLAM
  20. ZOVIA [Concomitant]
     Active Substance: ETHINYL ESTRADIOL\ETHYNODIOL DIACETATE
  21. ALBUTEROL SULFATE HFA [Concomitant]
     Active Substance: ALBUTEROL SULFATE
  22. ABILIFY [Concomitant]
     Active Substance: ARIPIPRAZOLE
  23. NAMENDA [Concomitant]
     Active Substance: MEMANTINE HYDROCHLORIDE
  24. RANITIDINE. [Concomitant]
     Active Substance: RANITIDINE
  25. VOLTAREN [Concomitant]
     Active Substance: DICLOFENAC SODIUM
  26. ADDERALL XR [Concomitant]
     Active Substance: AMPHETAMINE ASPARTATE\AMPHETAMINE SULFATE\DEXTROAMPHETAMINE SACCHARATE\DEXTROAMPHETAMINE SULFATE
  27. THROAT [Concomitant]
  28. PRENATAL [Concomitant]
     Active Substance: VITAMINS
  29. SPRINTEC [Concomitant]
     Active Substance: ETHINYL ESTRADIOL\NORGESTIMATE
  30. CALCIUM ACETATE. [Concomitant]
     Active Substance: CALCIUM ACETATE
  31. NORETHINDRONE. [Concomitant]
     Active Substance: NORETHINDRONE
  32. XYREM [Suspect]
     Active Substance: SODIUM OXYBATE
     Indication: CATAPLEXY
     Dosage: 3 G, FIRST DOSE
     Route: 048
     Dates: start: 201606
  33. XYREM [Suspect]
     Active Substance: SODIUM OXYBATE
     Dosage: 2.5 G, SECOND DOSE
     Route: 048
     Dates: start: 201606
  34. PROZAC [Suspect]
     Active Substance: FLUOXETINE HYDROCHLORIDE
     Indication: PRODUCT USED FOR UNKNOWN INDICATION
     Dosage: UNK
     Dates: start: 20160704
  35. DAYTIME COLD AND FLU RELIEF NON DROWSY [Concomitant]
     Active Substance: ACETAMINOPHEN\DEXTROMETHORPHAN HYDROBROMIDE\PHENYLEPHRINE HYDROCHLORIDE
  36. KLONOPIN [Concomitant]
     Active Substance: CLONAZEPAM
  37. PHENAZOPYRIDINE. [Concomitant]
     Active Substance: PHENAZOPYRIDINE
  38. VENLAFAXINE HCL [Concomitant]
     Active Substance: VENLAFAXINE HYDROCHLORIDE

REACTIONS (12)
  - Fatigue [Unknown]
  - Migraine with aura [Not Recovered/Not Resolved]
  - Libido increased [Not Recovered/Not Resolved]
  - Binge eating [Unknown]
  - Oropharyngeal pain [Not Recovered/Not Resolved]
  - Sleep paralysis [Unknown]
  - Malaise [Unknown]
  - Upper respiratory tract congestion [Unknown]
  - Productive cough [Not Recovered/Not Resolved]
  - Wrong technique in product usage process [Unknown]
  - Hunger [Unknown]
  - Dizziness [Unknown]

NARRATIVE: CASE EVENT DATE: 201607
